FAERS Safety Report 14982880 (Version 1)
Quarter: 2018Q2

REPORT INFORMATION
  Report Type: Spontaneous
  Country: US (occurrence: US)
  Receive Date: 20180607
  Receipt Date: 20180607
  Transmission Date: 20180711
  Serious: No
  Sender: FDA-Public Use
  Company Number: US-WEST-WARD PHARMACEUTICALS CORP.-US-H14001-18-01592

PATIENT
  Age: 56 Year
  Sex: Female
  Weight: 52.61 kg

DRUGS (2)
  1. FLUTICASONE. [Suspect]
     Active Substance: FLUTICASONE
     Dosage: 50 MCG
     Route: 045
     Dates: start: 201801, end: 20180225
  2. FLUTICASONE. [Suspect]
     Active Substance: FLUTICASONE
     Indication: NASAL CONGESTION
     Dosage: 100 MCG
     Route: 045
     Dates: start: 201801, end: 201801

REACTIONS (1)
  - Drug ineffective [Recovered/Resolved]
